FAERS Safety Report 11157199 (Version 2)
Quarter: 2015Q3

REPORT INFORMATION
  Report Type: Spontaneous
  Country: US (occurrence: US)
  Receive Date: 20150602
  Receipt Date: 20150901
  Transmission Date: 20151125
  Serious: Yes (Hospitalization, Disabling, Other)
  Sender: FDA-Public Use
  Company Number: US-ENDO PHARMACEUTICALS INC.-2015-001187

PATIENT
  Age: 68 Year
  Sex: Male
  Weight: 77.18 kg

DRUGS (2)
  1. ANDROGEL [Suspect]
     Active Substance: TESTOSTERONE
     Indication: ANDROGEN REPLACEMENT THERAPY
     Dosage: ^ONE PUMP PER DAY^
     Route: 065
     Dates: start: 2013, end: 2014
  2. TESTIM [Suspect]
     Active Substance: TESTOSTERONE
     Indication: ANDROGEN REPLACEMENT THERAPY
     Dosage: ^ONE TUBE PER DAY^
     Route: 062
     Dates: start: 2012

REACTIONS (4)
  - Depression [Unknown]
  - Polycythaemia [Not Recovered/Not Resolved]
  - Anxiety [Unknown]
  - Cerebrovascular accident [Not Recovered/Not Resolved]

NARRATIVE: CASE EVENT DATE: 20120404
